FAERS Safety Report 12913642 (Version 1)
Quarter: 2016Q4

REPORT INFORMATION
  Report Type: Spontaneous
  Country: US (occurrence: US)
  Receive Date: 20161104
  Receipt Date: 20161104
  Transmission Date: 20170207
  Serious: Yes (Death, Hospitalization, Other)
  Sender: FDA-Public Use
  Company Number: US-ABBVIE-16P-163-1771492-00

PATIENT
  Age: 18 Year
  Sex: Female

DRUGS (7)
  1. FOLIC ACID. [Concomitant]
     Active Substance: FOLIC ACID
     Indication: PRODUCT USED FOR UNKNOWN INDICATION
     Route: 048
     Dates: start: 201410
  2. ZONEGRAN [Concomitant]
     Active Substance: ZONISAMIDE
     Indication: SEIZURE
     Route: 048
     Dates: start: 201410, end: 201410
  3. DEPAKOTE [Suspect]
     Active Substance: DIVALPROEX SODIUM
     Route: 048
     Dates: start: 201410, end: 201410
  4. KEPPRA [Concomitant]
     Active Substance: LEVETIRACETAM
     Route: 048
     Dates: start: 20141015
  5. KEPPRA [Concomitant]
     Active Substance: LEVETIRACETAM
     Indication: PETIT MAL EPILEPSY
     Route: 048
  6. DEPAKOTE [Suspect]
     Active Substance: DIVALPROEX SODIUM
     Indication: SEIZURE
     Route: 042
     Dates: start: 20161014, end: 20161014
  7. TRILEPTAL [Concomitant]
     Active Substance: OXCARBAZEPINE
     Indication: PETIT MAL EPILEPSY
     Dosage: 1.5 TABS TWICE PER DAY
     Route: 048

REACTIONS (17)
  - Dyspnoea [Unknown]
  - Pain in extremity [Unknown]
  - Stevens-Johnson syndrome [Fatal]
  - Dysuria [Unknown]
  - Vulvovaginal pruritus [Unknown]
  - Peripheral swelling [Unknown]
  - Dyspnoea [Recovering/Resolving]
  - Oropharyngeal pain [Unknown]
  - Atelectasis [Unknown]
  - Dysphagia [Unknown]
  - Cardio-respiratory arrest [Fatal]
  - Epilepsy [Fatal]
  - Bradycardia [Unknown]
  - Pulseless electrical activity [Unknown]
  - Pulmonary embolism [Fatal]
  - Painful respiration [Unknown]
  - Pruritus [Unknown]

NARRATIVE: CASE EVENT DATE: 201410
